FAERS Safety Report 23030303 (Version 3)
Quarter: 2023Q4

REPORT INFORMATION
  Report Type: Spontaneous
  Country: US (occurrence: US)
  Receive Date: 20231005
  Receipt Date: 20231108
  Transmission Date: 20240110
  Serious: Yes (Other)
  Sender: FDA-Public Use
  Company Number: US-002147023-NVSC2023US214351

PATIENT
  Age: 76 Year
  Sex: Male
  Weight: 86.7 kg

DRUGS (1)
  1. PLUVICTO [Suspect]
     Active Substance: LUTETIUM LU-177 VIPIVOTIDE TETRAXETAN
     Indication: Prostate cancer metastatic
     Dosage: 205.5 MCI
     Route: 042
     Dates: start: 20230818, end: 20230929

REACTIONS (3)
  - Ill-defined disorder [Not Recovered/Not Resolved]
  - Renal impairment [Unknown]
  - Pancytopenia [Unknown]

NARRATIVE: CASE EVENT DATE: 20230929
